FAERS Safety Report 6837001-X (Version None)
Quarter: 2010Q3

REPORT INFORMATION
  Report Type: 
  Country: None (occurrence: None)
  Receive Date: 20100713
  Receipt Date: 20100705
  Transmission Date: 20110219
  Serious: Yes (Other)
  Sender: FDA-Public Use
  Company Number: BR-ABBOTT-10P-020-0655614-00

PATIENT
  Sex: Male
  Weight: 63 kg

DRUGS (5)
  1. HUMIRA [Suspect]
     Indication: ANKYLOSING SPONDYLITIS
     Route: 058
  2. VARTS [Concomitant]
     Indication: HYPERTENSION
     Route: 048
  3. AMILORIDE HYDROCHLORIDE, HYDROCHLOROTHIAZIDE (MODURETIC) [Concomitant]
     Indication: DIURETIC THERAPY
     Route: 048
  4. ATENOLOL [Concomitant]
     Indication: HYPERTENSION
     Route: 048
  5. WARFARIN SODIUM [Concomitant]
     Indication: THROMBOSIS
     Dates: start: 20020101

REACTIONS (2)
  - BENIGN LUNG NEOPLASM [None]
  - THROMBOSIS [None]
